FAERS Safety Report 12354986 (Version 1)
Quarter: 2016Q2

REPORT INFORMATION
  Report Type: Spontaneous
  Country: US (occurrence: US)
  Receive Date: 20160511
  Receipt Date: 20160511
  Transmission Date: 20160815
  Serious: No
  Sender: FDA-Public Use
  Company Number: US-WATSON-2015-15446

PATIENT
  Age: 16 Year
  Sex: Male

DRUGS (1)
  1. DOXYCYCLINE MONOHYDRATE (WATSON LABORATORIES) [Suspect]
     Active Substance: DOXYCYCLINE
     Indication: PRODUCT USED FOR UNKNOWN INDICATION
     Dosage: 100 MG, UNKNOWN
     Route: 065

REACTIONS (3)
  - Rash pustular [Unknown]
  - Condition aggravated [Unknown]
  - Skin disorder [Unknown]
